FAERS Safety Report 22266062 (Version 1)
Quarter: 2023Q2

REPORT INFORMATION
  Report Type: Spontaneous
  Country: US (occurrence: US)
  Receive Date: 20230428
  Receipt Date: 20230428
  Transmission Date: 20230722
  Serious: Yes (Other)
  Sender: FDA-Public Use
  Company Number: US-TEVA-2023-US-2880731

PATIENT
  Age: 63 Year
  Sex: Female

DRUGS (3)
  1. AUSTEDO [Suspect]
     Active Substance: DEUTETRABENAZINE
     Indication: Tardive dyskinesia
     Dosage: 18 MILLIGRAM DAILY;
     Route: 048
     Dates: start: 20230310
  2. AUSTEDO [Suspect]
     Active Substance: DEUTETRABENAZINE
     Dosage: 30 MILLIGRAM DAILY; TITRATED UP TO 15 MG TWICE A DAY (6 MG TABLET + 9MG TABLET)
     Route: 048
     Dates: start: 20230407
  3. AUSTEDO [Suspect]
     Active Substance: DEUTETRABENAZINE
     Dosage: 18 MILLIGRAM DAILY; LOWERED MY DOSE
     Route: 048
     Dates: start: 202304

REACTIONS (4)
  - Tardive dyskinesia [Unknown]
  - Cognitive disorder [Unknown]
  - Impaired work ability [Unknown]
  - Adverse drug reaction [Unknown]

NARRATIVE: CASE EVENT DATE: 20230101
